FAERS Safety Report 15609508 (Version 1)
Quarter: 2018Q4

REPORT INFORMATION
  Report Type: Report from Study
  Country: None (occurrence: US)
  Receive Date: 20181112
  Receipt Date: 20181112
  Transmission Date: 20190205
  Serious: Yes (Other)
  Sender: FDA-Public Use
  Company Number: US-ABBVIE-18K-163-2547275-00

PATIENT
  Sex: Female

DRUGS (1)
  1. HUMIRA [Suspect]
     Active Substance: ADALIMUMAB
     Indication: RHEUMATOID ARTHRITIS
     Route: 058

REACTIONS (8)
  - Fibromyalgia [Unknown]
  - Anaemia [Unknown]
  - Rectal haemorrhage [Unknown]
  - Myocardial infarction [Unknown]
  - Abdominal hernia [Unknown]
  - Coronary artery occlusion [Unknown]
  - Epistaxis [Unknown]
  - Varicose vein [Unknown]
